FAERS Safety Report 22315005 (Version 2)
Quarter: 2023Q2

REPORT INFORMATION
  Report Type: Spontaneous
  Country: CN (occurrence: CN)
  Receive Date: 20230512
  Receipt Date: 20230526
  Transmission Date: 20230721
  Serious: Yes (Other)
  Sender: FDA-Public Use
  Company Number: CN-BAXTER-2023BAX021312

PATIENT
  Age: 52 Year
  Sex: Female
  Weight: 46 kg

DRUGS (4)
  1. CYCLOPHOSPHAMIDE [Suspect]
     Active Substance: CYCLOPHOSPHAMIDE
     Indication: Nephropathy
     Dosage: UNK
     Route: 065
     Dates: start: 2022
  2. CYCLOPHOSPHAMIDE [Suspect]
     Active Substance: CYCLOPHOSPHAMIDE
     Indication: Gastric ulcer
  3. PINUS SYLVESTRIS POLLEN [Suspect]
     Active Substance: PINUS SYLVESTRIS POLLEN
     Indication: Nephropathy
     Dosage: STRONG PINE TABLETS 50MG/D
     Route: 065
     Dates: start: 2022
  4. PINUS SYLVESTRIS POLLEN [Suspect]
     Active Substance: PINUS SYLVESTRIS POLLEN
     Indication: Gastric ulcer

REACTIONS (8)
  - Renal amyloidosis [Unknown]
  - Condition aggravated [Unknown]
  - Swelling face [Unknown]
  - Swelling of eyelid [Unknown]
  - Blood pressure decreased [Unknown]
  - Abdominal pain upper [Unknown]
  - Oedema peripheral [Unknown]
  - Oedema peripheral [Unknown]

NARRATIVE: CASE EVENT DATE: 20220101
